FAERS Safety Report 6140128-1 (Version None)
Quarter: 2009Q2

REPORT INFORMATION
  Report Type: 
  Country: None (occurrence: None)
  Receive Date: 20090401
  Receipt Date: 20090326
  Transmission Date: 20091009
  Serious: Yes (Other)
  Sender: FDA-Public Use
  Company Number: IE-WYE-G03067809

PATIENT
  Sex: Female
  Weight: 84 kg

DRUGS (21)
  1. TAZOCIN [Suspect]
     Indication: DIVERTICULITIS
     Dosage: RECEIVED TWO DOSES 4.9G/0.5G 12 HOURS APART
     Route: 042
     Dates: start: 20090127, end: 20090128
  2. METRONIDAZOLE [Concomitant]
     Indication: DIVERTICULITIS
     Route: 042
     Dates: start: 20090116, end: 20090121
  3. METRONIDAZOLE [Concomitant]
     Route: 048
     Dates: start: 20090121, end: 20090126
  4. CEFUROXIME [Concomitant]
     Indication: DIVERTICULITIS
     Route: 048
     Dates: start: 20090121, end: 20090126
  5. CIPROFLOXACIN [Concomitant]
     Indication: DIVERTICULITIS
     Route: 042
     Dates: start: 20090127, end: 20090129
  6. CIPROFLOXACIN [Concomitant]
     Route: 048
     Dates: start: 20090129, end: 20090201
  7. PARACETAMOL [Concomitant]
     Indication: PAIN
     Dosage: AS REQUIRED
  8. TRAMADOL HCL [Concomitant]
     Indication: PAIN
     Dosage: 50 MG AS REQUIRED
     Route: 048
  9. PROCHLORPERAZINE [Concomitant]
     Indication: NAUSEA
     Dosage: 12.5 MG AS REQUIRED
     Route: 030
  10. WARFARIN [Concomitant]
     Route: 048
  11. DIGOXIN [Concomitant]
     Route: 048
  12. AMITRIPTYLINE HCL [Concomitant]
     Indication: OSTEOPOROSIS
     Route: 048
  13. RISEDRONATE SODIUM [Concomitant]
     Indication: OSTEOPOROSIS
     Route: 048
  14. LANSOPRAZOLE [Concomitant]
     Indication: DYSPEPSIA
     Route: 048
     Dates: start: 20090121
  15. SYMBICORT [Concomitant]
     Route: 055
  16. PREDNISOLONE [Concomitant]
     Route: 048
     Dates: end: 20090117
  17. ALLURAL [Concomitant]
     Indication: GOUT
     Route: 048
     Dates: end: 20090110
  18. UNIPHRINE [Concomitant]
     Route: 048
  19. COMBIVENT [Concomitant]
     Dosage: 2 PUFFS AS REQUIRED
  20. FLOXACILLIN [Concomitant]
     Route: 048
     Dates: start: 20090130, end: 20090201
  21. CEFUROXIME [Concomitant]
     Indication: DIVERTICULITIS
     Route: 042
     Dates: start: 20090116, end: 20090121

REACTIONS (4)
  - CHILLS [None]
  - PERIPHERAL COLDNESS [None]
  - POLYMYALGIA RHEUMATICA [None]
  - SKIN DISCOLOURATION [None]
